FAERS Safety Report 4922731-7 (Version None)
Quarter: 2006Q1

REPORT INFORMATION
  Report Type: 
  Country: None (occurrence: None)
  Receive Date: 20060224
  Receipt Date: 20050809
  Transmission Date: 20060701
  Serious: Yes (Hospitalization, Other)
  Sender: FDA-Public Use
  Company Number: US-MERCK-0508USA01844

PATIENT
  Age: 72 Year
  Sex: Male
  Weight: 86 kg

DRUGS (2)
  1. VIOXX [Suspect]
     Indication: PAIN IN EXTREMITY
     Route: 048
     Dates: start: 20000101
  2. VIOXX [Suspect]
     Route: 048
     Dates: end: 20040801

REACTIONS (15)
  - ABDOMINAL PAIN UPPER [None]
  - ANXIETY [None]
  - CARDIOMEGALY [None]
  - CAROTID ARTERY STENOSIS [None]
  - CEREBROVASCULAR ACCIDENT [None]
  - CONSTIPATION [None]
  - DIZZINESS [None]
  - DYSPNOEA EXERTIONAL [None]
  - HEART RATE DECREASED [None]
  - HERPES ZOSTER [None]
  - INSOMNIA [None]
  - INTERMITTENT CLAUDICATION [None]
  - MALAISE [None]
  - NAUSEA [None]
  - NOCTURIA [None]
